FAERS Safety Report 7519005-7 (Version None)
Quarter: 2011Q2

REPORT INFORMATION
  Report Type: 
  Country: None (occurrence: None)
  Receive Date: 20110602
  Receipt Date: 20110526
  Transmission Date: 20111010
  Serious: Yes (Other)
  Sender: FDA-Public Use
  Company Number: US-ROXANE LABORATORIES, INC.-2011-RO-00735RO

PATIENT
  Age: 23 Year
  Sex: Female

DRUGS (7)
  1. TACROLIMUS [Suspect]
     Dosage: 8 MG
  2. TACROLIMUS [Suspect]
     Indication: IMMUNOSUPPRESSANT DRUG THERAPY
     Dosage: 10 MG
  3. TACROLIMUS [Suspect]
     Dosage: 9 MG
  4. TACROLIMUS [Suspect]
     Dosage: 12 MG
  5. CELLCEPT [Suspect]
     Indication: IMMUNOSUPPRESSANT DRUG THERAPY
     Dosage: 2000 MG
  6. CLOTRIMAZOLE [Suspect]
     Indication: ANTIFUNGAL PROPHYLAXIS
     Dosage: 40 MG
     Route: 048
  7. PREDNISONE [Suspect]
     Indication: IMMUNOSUPPRESSANT DRUG THERAPY

REACTIONS (1)
  - DRUG LEVEL INCREASED [None]
